FAERS Safety Report 8114416 (Version 2)
Quarter: 2013Q3

REPORT INFORMATION
  Report Type: Spontaneous
  Country: FR (occurrence: FR)
  Receive Date: 20110831
  Receipt Date: 20130925
  Transmission Date: 20140515
  Serious: Yes (Hospitalization)
  Sender: FDA-Public Use
  Company Number: FR-UCBSA-039696

PATIENT
  Age: 88 Year
  Sex: Female

DRUGS (7)
  1. KEPPRA [Suspect]
     Route: 048
     Dates: start: 2009, end: 201104
  2. TAHOR [Suspect]
     Dosage: 40MG
     Route: 048
     Dates: end: 2011
  3. NITRIDERM TTS [Concomitant]
     Dosage: 10MG/24H
  4. LASILIX FAIBLE [Concomitant]
     Dosage: 20MG
  5. BISOPROLOL [Concomitant]
  6. KARDEGIC [Concomitant]
     Dosage: 75MG
  7. DIFFU-K [Concomitant]

REACTIONS (4)
  - Liver injury [Recovered/Resolved]
  - Thrombocytopenia [Not Recovered/Not Resolved]
  - Fall [Unknown]
  - Confusional state [Unknown]
